FAERS Safety Report 24212301 (Version 2)
Quarter: 2024Q3

REPORT INFORMATION
  Report Type: Report from Study
  Country: JP (occurrence: JP)
  Receive Date: 20240815
  Receipt Date: 20240911
  Transmission Date: 20241017
  Serious: Yes (Death, Other)
  Sender: ROCHE
  Company Number: JP-ROCHE-10000054577

PATIENT

DRUGS (4)
  1. VENETOCLAX [Suspect]
     Active Substance: VENETOCLAX
     Indication: Chronic lymphocytic leukaemia
     Route: 065
  2. VENETOCLAX [Suspect]
     Active Substance: VENETOCLAX
     Indication: B-cell small lymphocytic lymphoma
  3. RITUXIMAB [Suspect]
     Active Substance: RITUXIMAB
     Indication: Chronic lymphocytic leukaemia
     Route: 042
  4. RITUXIMAB [Suspect]
     Active Substance: RITUXIMAB
     Indication: B-cell small lymphocytic lymphoma

REACTIONS (5)
  - COVID-19 [Fatal]
  - Neutrophil count decreased [Unknown]
  - Anaemia [Unknown]
  - Tumour lysis syndrome [Unknown]
  - Infusion related reaction [Unknown]
